FAERS Safety Report 13369197 (Version 2)
Quarter: 2017Q3

REPORT INFORMATION
  Report Type: Spontaneous
  Country: JP (occurrence: JP)
  Receive Date: 20170324
  Receipt Date: 20170704
  Transmission Date: 20171127
  Serious: Yes (Congenital Anomaly, Other)
  Sender: FDA-Public Use
  Company Number: PHJP2017JP009374

PATIENT

DRUGS (2)
  1. TEGRETOL [Suspect]
     Active Substance: CARBAMAZEPINE
     Indication: FOETAL EXPOSURE DURING PREGNANCY
     Dosage: MATERNAL DOSE (UNKNOWN)
     Route: 064
  2. MAGNESIUM [Suspect]
     Active Substance: MAGNESIUM
     Indication: FOETAL EXPOSURE DURING PREGNANCY
     Dosage: MATERNAL DOSE: 1 G, QH
     Route: 064

REACTIONS (10)
  - Double outlet right ventricle [Unknown]
  - Ventricular tachycardia [Unknown]
  - Pulmonary valve stenosis congenital [Unknown]
  - Bradycardia foetal [Unknown]
  - Foetal arrhythmia [Unknown]
  - Pulmonary artery stenosis [Unknown]
  - Long QT syndrome congenital [Unknown]
  - Electrocardiogram QT prolonged [Unknown]
  - Premature baby [Unknown]
  - Foetal exposure during pregnancy [Unknown]
